FAERS Safety Report 18462971 (Version 1)
Quarter: 2020Q4

REPORT INFORMATION
  Report Type: Spontaneous
  Country: US (occurrence: US)
  Receive Date: 20201104
  Receipt Date: 20201104
  Transmission Date: 20210114
  Serious: Yes (Hospitalization)
  Sender: FDA-Public Use
  Company Number: US-FRESENIUS MEDICAL CARE RENAL THERAPIES GROUP-FMC-2011-001308

PATIENT
  Age: 62 Year
  Sex: Male

DRUGS (25)
  1. PRAMIPEXOLE. [Concomitant]
     Active Substance: PRAMIPEXOLE
  2. BENZONATATE. [Concomitant]
     Active Substance: BENZONATATE
  3. LANTHANUM [Concomitant]
     Active Substance: LANTHANUM
  4. MELATONIN [Concomitant]
     Active Substance: MELATONIN
  5. TRAZODONE [Concomitant]
     Active Substance: TRAZODONE HYDROCHLORIDE
  6. VENTOLIN HFA [Concomitant]
     Active Substance: ALBUTEROL SULFATE
  7. ELIQUIS [Concomitant]
     Active Substance: APIXABAN
  8. APIXABAN [Concomitant]
     Active Substance: APIXABAN
  9. PATIROMER CALCIUM [Concomitant]
     Active Substance: PATIROMER
  10. SODIUM BICARBONATE. [Concomitant]
     Active Substance: SODIUM BICARBONATE
  11. CARVEDILOL. [Concomitant]
     Active Substance: CARVEDILOL
  12. MINOXIDIL. [Concomitant]
     Active Substance: MINOXIDIL
  13. CARVEDILOL. [Concomitant]
     Active Substance: CARVEDILOL
  14. HYDROCODONE [Concomitant]
     Active Substance: HYDROCODONE
  15. ONDANSETRON [Concomitant]
     Active Substance: ONDANSETRON
  16. PREGABALIN. [Concomitant]
     Active Substance: PREGABALIN
  17. DELFLEX [Suspect]
     Active Substance: CALCIUM CHLORIDE\DEXTROSE\MAGNESIUM CHLORIDE\SODIUM CHLORIDE\SODIUM LACTATE
     Indication: END STAGE RENAL DISEASE
     Route: 033
  18. CALCITRIOL. [Concomitant]
     Active Substance: CALCITRIOL
  19. FAMOTIDINE. [Concomitant]
     Active Substance: FAMOTIDINE
  20. OMEPRAZOLE. [Concomitant]
     Active Substance: OMEPRAZOLE
  21. CINACALCET. [Concomitant]
     Active Substance: CINACALCET
  22. GENTAMICIN. [Concomitant]
     Active Substance: GENTAMICIN
  23. LOSARTAN. [Concomitant]
     Active Substance: LOSARTAN
  24. SPIRIVA RESPIMAT [Concomitant]
     Active Substance: TIOTROPIUM BROMIDE
  25. PREDNISONE. [Concomitant]
     Active Substance: PREDNISONE

REACTIONS (2)
  - Pulmonary oedema [Recovered/Resolved]
  - Fluid overload [Recovered/Resolved]

NARRATIVE: CASE EVENT DATE: 20201011
